FAERS Safety Report 16393846 (Version 3)
Quarter: 2019Q2

REPORT INFORMATION
  Report Type: Spontaneous
  Country: US (occurrence: US)
  Receive Date: 20190605
  Receipt Date: 20190613
  Transmission Date: 20190711
  Serious: No
  Sender: FDA-Public Use
  Company Number: US-PFIZER INC-2019234361

PATIENT
  Age: 51 Year
  Sex: Female
  Weight: 61.2 kg

DRUGS (1)
  1. ELETRIPTAN HBR [Suspect]
     Active Substance: ELETRIPTAN HYDROBROMIDE
     Indication: MIGRAINE
     Dosage: 40 MG, AS NEEDED (TAKES ANYWHERE FROM 5 TO 12 TIMES A MONTH)
     Route: 048

REACTIONS (1)
  - Drug ineffective [Unknown]
